FAERS Safety Report 8926061 (Version 2)
Quarter: 2014Q2

REPORT INFORMATION
  Report Type: Report from Study
  Country: US (occurrence: US)
  Receive Date: 20121126
  Receipt Date: 20140508
  Transmission Date: 20141212
  Serious: Yes (Other)
  Sender: FDA-Public Use
  Company Number: US-BAYER-2012-075149

PATIENT
  Age: 79 Year
  Sex: Male

DRUGS (4)
  1. NEXAVAR [Suspect]
     Indication: HEPATIC CANCER
     Dosage: 400 MG, BID
     Dates: start: 20120717, end: 20120726
  2. NEXAVAR [Suspect]
     Indication: HEPATIC CANCER
     Dosage: 400 MG, BID
     Route: 048
     Dates: start: 20120814, end: 20131112
  3. NEXAVAR [Suspect]
     Indication: HEPATIC CANCER
     Dosage: 3 X 200 MG
     Route: 048
     Dates: start: 20140116, end: 2014
  4. COUMADIN [Concomitant]
     Dosage: UNK
     Dates: end: 2012

REACTIONS (8)
  - Squamous cell carcinoma [Not Recovered/Not Resolved]
  - Blood urine present [Recovering/Resolving]
  - Constipation [None]
  - Musculoskeletal pain [Not Recovered/Not Resolved]
  - Platelet count decreased [Recovering/Resolving]
  - Diarrhoea [Recovering/Resolving]
  - Actinic keratosis [None]
  - Pain [None]
